FAERS Safety Report 20772567 (Version 1)
Quarter: 2022Q2

REPORT INFORMATION
  Report Type: Spontaneous
  Country: DE (occurrence: DE)
  Receive Date: 20220502
  Receipt Date: 20220502
  Transmission Date: 20220721
  Serious: Yes (Disabling)
  Sender: FDA-Public Use
  Company Number: None

PATIENT
  Age: 17 Year
  Sex: Male
  Weight: 70 kg

DRUGS (2)
  1. VALPROIC ACID [Suspect]
     Active Substance: VALPROIC ACID
     Indication: Bipolar disorder
     Dosage: KURZFRISTIGE EINNAHME IM MAI 2021, DANACH SPORADISCH 1500 -2000 MG (SHORT-TERM USE IN MAY 2021, SPOR
     Route: 048
     Dates: start: 202105
  2. VALPROIC ACID [Suspect]
     Active Substance: VALPROIC ACID
     Dosage: AB CA. MITTE SEPTEMBER 2021 REGELMAEBIGE EINNAHME (FROM APPROX. MID-SEPTEMBER 2021 REGULAR INTAKE)
     Route: 048
     Dates: start: 202109, end: 202111

REACTIONS (1)
  - Urinary incontinence [Not Recovered/Not Resolved]

NARRATIVE: CASE EVENT DATE: 20211110
